FAERS Safety Report 10463689 (Version 1)
Quarter: 2014Q3

REPORT INFORMATION
  Report Type: Spontaneous
  Country: US (occurrence: None)
  Receive Date: 20140918
  Receipt Date: 20140918
  Transmission Date: 20150326
  Serious: No
  Sender: FDA-Public Use
  Company Number: None

PATIENT
  Age: 56 Year
  Sex: Male

DRUGS (1)
  1. XELJANZ [Suspect]
     Active Substance: TOFACITINIB CITRATE
     Indication: RHEUMATOID ARTHRITIS
     Route: 048
     Dates: start: 20140808, end: 20140831

REACTIONS (4)
  - Infected skin ulcer [None]
  - Paraesthesia [None]
  - Ulcer [None]
  - Hyperaesthesia [None]

NARRATIVE: CASE EVENT DATE: 20140831
